FAERS Safety Report 10153657 (Version 1)
Quarter: 2014Q2

REPORT INFORMATION
  Report Type: Spontaneous
  Country: US (occurrence: US)
  Receive Date: 20140506
  Receipt Date: 20140506
  Transmission Date: 20141212
  Serious: No
  Sender: FDA-Public Use
  Company Number: US-009507513-1405USA000816

PATIENT
  Sex: 0

DRUGS (2)
  1. ISENTRESS CHEWABLE TABLETS [Suspect]
  2. EPZICOM [Suspect]

REACTIONS (2)
  - Glycosylated haemoglobin increased [Recovering/Resolving]
  - Hyperglycaemia [Recovering/Resolving]
